FAERS Safety Report 9139757 (Version 5)
Quarter: 2014Q3

REPORT INFORMATION
  Report Type: Spontaneous
  Country: US (occurrence: US)
  Receive Date: 20130305
  Receipt Date: 20140820
  Transmission Date: 20150326
  Serious: Yes (Life-Threatening, Hospitalization, Disabling, Other)
  Sender: FDA-Public Use
  Company Number: US-009507513-1302USA013553

PATIENT
  Sex: Female
  Weight: 99.4 kg

DRUGS (3)
  1. LISINOPRIL. [Concomitant]
     Active Substance: LISINOPRIL
     Dosage: 10 G, UNK
     Dates: start: 20120801
  2. CONCERTA [Concomitant]
     Active Substance: METHYLPHENIDATE HYDROCHLORIDE
     Indication: ATTENTION DEFICIT/HYPERACTIVITY DISORDER
     Dosage: UNK
     Route: 048
  3. NUVARING [Suspect]
     Active Substance: ETHINYL ESTRADIOL\ETONOGESTREL
     Indication: CONTRACEPTION
     Dosage: UNK
     Route: 067
     Dates: end: 20121128

REACTIONS (12)
  - Cerebral haemorrhage [Recovering/Resolving]
  - Jaw cyst [Unknown]
  - Cerebrovascular accident [Unknown]
  - Headache [Recovering/Resolving]
  - Generalised tonic-clonic seizure [Recovered/Resolved]
  - Tonsillectomy [Unknown]
  - Obesity [Unknown]
  - Hypertension [Unknown]
  - Embolism arterial [Unknown]
  - Depression [Unknown]
  - Intracranial venous sinus thrombosis [Unknown]
  - Nasal operation [Unknown]

NARRATIVE: CASE EVENT DATE: 201207
